FAERS Safety Report 17982121 (Version 2)
Quarter: 2020Q3

REPORT INFORMATION
  Report Type: Report from Study
  Country: IT (occurrence: IT)
  Receive Date: 20200706
  Receipt Date: 20200708
  Transmission Date: 20201103
  Serious: Yes (Hospitalization)
  Sender: FDA-Public Use
  Company Number: IT-REGENERON PHARMACEUTICALS, INC.-2020-47072

PATIENT

DRUGS (2)
  1. CEMIPLIMAB [Suspect]
     Active Substance: CEMIPLIMAB
     Dosage: 350 MG, Q3W
     Route: 042
     Dates: start: 20200624, end: 20200624
  2. CEMIPLIMAB [Suspect]
     Active Substance: CEMIPLIMAB
     Indication: SQUAMOUS CELL CARCINOMA
     Dosage: 350 MG, Q3W
     Route: 042
     Dates: start: 20200516, end: 20200516

REACTIONS (3)
  - Decreased appetite [Not Recovered/Not Resolved]
  - Confusional state [Not Recovered/Not Resolved]
  - Balance disorder [Not Recovered/Not Resolved]

NARRATIVE: CASE EVENT DATE: 20200603
